FAERS Safety Report 8614057 (Version 2)
Quarter: 2014Q1

REPORT INFORMATION
  Report Type: Spontaneous
  Country: US (occurrence: None)
  Receive Date: 20120323
  Receipt Date: 20130305
  Transmission Date: 20141002
  Serious: Yes (Other)
  Sender: FDA-Public Use
  Company Number: 163-21880-11022904

PATIENT
  Age: 85 Year
  Sex: Male

DRUGS (5)
  1. REVLIMID (LENALIDOMIDE) (25 MILLIGRAM, CAPSULES) [Suspect]
     Indication: PLASMA CELL MYELOMA
     Dosage: 25 MG, 1 IN 1 D, PO
     Route: 048
     Dates: start: 20111103
  2. REVLIMID [Suspect]
  3. REVLIMID [Suspect]
  4. REVLIMID [Suspect]
  5. WARFARIN SODIUM [Concomitant]

REACTIONS (5)
  - Spinal compression fracture [None]
  - Thrombosis [None]
  - Fatigue [None]
  - Oedema peripheral [None]
  - Periorbital oedema [None]
